FAERS Safety Report 4667931-9 (Version None)
Quarter: 2005Q2

REPORT INFORMATION
  Report Type: 
  Country: None (occurrence: None)
  Receive Date: 20050520
  Receipt Date: 20050509
  Transmission Date: 20051028
  Serious: Yes (Hospitalization)
  Sender: FDA-Public Use
  Company Number: US-JNJFOC-20050502241

PATIENT
  Age: 41 Year
  Sex: Female

DRUGS (4)
  1. DURAGESIC-100 [Suspect]
     Route: 062
     Dates: start: 20050201, end: 20050508
  2. DURAGESIC-100 [Suspect]
     Route: 062
     Dates: start: 20050201, end: 20050508
  3. DURAGESIC-100 [Suspect]
     Route: 062
     Dates: start: 20050201, end: 20050508
  4. XANAX [Concomitant]
     Indication: ANXIETY
     Route: 049
     Dates: start: 20050501

REACTIONS (11)
  - ASTHENIA [None]
  - CRYING [None]
  - DRUG WITHDRAWAL SYNDROME [None]
  - DYSPNOEA [None]
  - FEELING HOT [None]
  - FORMICATION [None]
  - HYPERHIDROSIS [None]
  - PAIN IN EXTREMITY [None]
  - PERIPHERAL COLDNESS [None]
  - SUFFOCATION FEELING [None]
  - SURGERY [None]
